FAERS Safety Report 8200585-3 (Version None)
Quarter: 2012Q1

REPORT INFORMATION
  Report Type: 
  Country: None (occurrence: None)
  Receive Date: 20120307
  Receipt Date: 20120223
  Transmission Date: 20120608
  Serious: Yes (Hospitalization)
  Sender: FDA-Public Use
  Company Number: DSA_55277_2012

PATIENT
  Sex: Male
  Weight: 70 kg

DRUGS (1)
  1. ELIDEL [Suspect]
     Indication: ECZEMA
     Dates: start: 20120104, end: 20120110

REACTIONS (3)
  - TONSILLITIS [None]
  - SEPSIS [None]
  - STREPTOCOCCUS TEST POSITIVE [None]
